FAERS Safety Report 5180911-2 (Version None)
Quarter: 2006Q4

REPORT INFORMATION
  Report Type: 
  Country: None (occurrence: None)
  Receive Date: 20061220
  Receipt Date: 20061127
  Transmission Date: 20070319
  Serious: Yes (Hospitalization)
  Sender: FDA-Public Use
  Company Number: JP-SP-2006-03270

PATIENT
  Age: 70 Year
  Sex: Male

DRUGS (1)
  1. IMMUCYST [Suspect]
     Indication: BLADDER CANCER
     Route: 043
     Dates: start: 20061101, end: 20061115

REACTIONS (4)
  - HEADACHE [None]
  - MENINGITIS [None]
  - NECK PAIN [None]
  - PYREXIA [None]
